FAERS Safety Report 5835743-6 (Version None)
Quarter: 2008Q3

REPORT INFORMATION
  Report Type: 
  Country: None (occurrence: None)
  Receive Date: 20080806
  Receipt Date: 20080725
  Transmission Date: 20090109
  Serious: Yes (Other)
  Sender: FDA-Public Use
  Company Number: SE-ROCHE-577615

PATIENT
  Age: 27 Year
  Sex: Female

DRUGS (1)
  1. ROACCUTAN [Suspect]
     Indication: ACNE
     Route: 048
     Dates: start: 20010101

REACTIONS (8)
  - ANXIETY [None]
  - ARTHRALGIA [None]
  - DEPRESSED MOOD [None]
  - DEPRESSION [None]
  - DRY EYE [None]
  - FEAR [None]
  - OBSESSIVE-COMPULSIVE DISORDER [None]
  - PHOBIA [None]
